FAERS Safety Report 11554633 (Version 1)
Quarter: 2015Q3

REPORT INFORMATION
  Report Type: Spontaneous
  Country: US (occurrence: US)
  Receive Date: 20150925
  Receipt Date: 20150925
  Transmission Date: 20151125
  Serious: No
  Sender: FDA-Public Use
  Company Number: US-BAYER-2015-421153

PATIENT
  Age: 80 Year
  Sex: Female
  Weight: 62.59 kg

DRUGS (2)
  1. CLARITIN REDITABS [Suspect]
     Active Substance: LORATADINE
     Indication: ANAL PRURITUS
     Dosage: 1 DF, BID SECOND WEEK
  2. CLARITIN REDITABS [Suspect]
     Active Substance: LORATADINE
     Indication: ANAL PRURITUS
     Dosage: 1 DF, QD FIRST WEEK
     Route: 048

REACTIONS (3)
  - Product use issue [None]
  - Somnolence [Unknown]
  - Off label use [Unknown]
